FAERS Safety Report 7216360-2 (Version None)
Quarter: 2011Q1

REPORT INFORMATION
  Report Type: 
  Country: None (occurrence: None)
  Receive Date: 20110105
  Receipt Date: 20110105
  Transmission Date: 20110831
  Serious: No
  Sender: FDA-Public Use
  Company Number: None

PATIENT
  Sex: Female

DRUGS (2)
  1. FLOMAX [Suspect]
  2. TAMSULOSIN HCL [Suspect]
     Indication: URINARY TRACT DISORDER
     Dosage: 0.4 MG
     Dates: start: 20100401, end: 20100501

REACTIONS (2)
  - UNEVALUABLE EVENT [None]
  - PRODUCT SUBSTITUTION ISSUE [None]
